FAERS Safety Report 5384812-6 (Version None)
Quarter: 2007Q3

REPORT INFORMATION
  Report Type: 
  Country: None (occurrence: None)
  Receive Date: 20070711
  Receipt Date: 20070709
  Transmission Date: 20080115
  Serious: Yes (Hospitalization)
  Sender: FDA-Public Use
  Company Number: IT-MERCK-0707ITA00014

PATIENT
  Age: 27 Year
  Sex: Female

DRUGS (1)
  1. MAXALT [Suspect]
     Indication: HEADACHE
     Route: 048
     Dates: start: 20070621, end: 20070621

REACTIONS (2)
  - MUSCLE CONTRACTURE [None]
  - PAIN [None]
